FAERS Safety Report 10403869 (Version 21)
Quarter: 2018Q1

REPORT INFORMATION
  Report Type: Spontaneous
  Country: NL (occurrence: NL)
  Receive Date: 20140822
  Receipt Date: 20180322
  Transmission Date: 20180508
  Serious: Yes (Other)
  Sender: FDA-Public Use
  Company Number: NL-009507513-1406NLD011350

PATIENT
  Age: 26 Year
  Sex: Female
  Weight: 66 kg

DRUGS (2)
  1. IMPLANON [Suspect]
     Active Substance: ETONOGESTREL
     Dosage: 1 DF, IN THE LEFT ARM
     Route: 058
     Dates: start: 201104
  2. IMPLANON [Suspect]
     Active Substance: ETONOGESTREL
     Dosage: UNK,
     Route: 058
     Dates: start: 2009

REACTIONS (7)
  - Surgery [Not Recovered/Not Resolved]
  - Complication associated with device [Recovered/Resolved]
  - Incorrect drug administration duration [Unknown]
  - General anaesthesia [Not Recovered/Not Resolved]
  - Device difficult to use [Unknown]
  - Device breakage [Unknown]
  - Overdose [Unknown]

NARRATIVE: CASE EVENT DATE: 201104
